FAERS Safety Report 21779501 (Version 1)
Quarter: 2022Q4

REPORT INFORMATION
  Report Type: Spontaneous
  Country: US (occurrence: US)
  Receive Date: 20221226
  Receipt Date: 20221226
  Transmission Date: 20230112
  Serious: No
  Sender: FDA-Public Use
  Company Number: US-BAYER-2022P030447

PATIENT
  Age: 69 Year
  Sex: Male
  Weight: 138.3 kg

DRUGS (7)
  1. ADEMPAS [Suspect]
     Active Substance: RIOCIGUAT
     Indication: Pulmonary arterial hypertension
     Dosage: UNK
  2. ADEMPAS [Suspect]
     Active Substance: RIOCIGUAT
     Dosage: 0.5 MG, TID
  3. ORENITRAM [Suspect]
     Active Substance: TREPROSTINIL
     Indication: Pulmonary arterial hypertension
     Dosage: UNK
     Dates: start: 20220321
  4. ORENITRAM [Suspect]
     Active Substance: TREPROSTINIL
     Indication: Pulmonary arterial hypertension
     Dosage: 3.5 MG, TID
     Route: 048
  5. AMLODIPINE [Concomitant]
     Active Substance: AMLODIPINE BESYLATE
  6. ELIQUIS [Concomitant]
     Active Substance: APIXABAN
  7. APIXABAN [Concomitant]
     Active Substance: APIXABAN

REACTIONS (10)
  - Influenza [None]
  - Weight increased [None]
  - Diarrhoea [None]
  - Headache [None]
  - Dyspnoea [None]
  - Fatigue [None]
  - Constipation [None]
  - Back pain [None]
  - Nausea [None]
  - Oedema peripheral [None]

NARRATIVE: CASE EVENT DATE: 20220101
